FAERS Safety Report 21356765 (Version 1)
Quarter: 2022Q3

REPORT INFORMATION
  Report Type: Spontaneous
  Country: BR (occurrence: BR)
  Receive Date: 20220920
  Receipt Date: 20220920
  Transmission Date: 20221027
  Serious: Yes (Hospitalization)
  Sender: FDA-Public Use
  Company Number: BR-BAYER-2022A129203

PATIENT
  Age: 88 Year
  Sex: Female
  Weight: 47 kg

DRUGS (1)
  1. XARELTO [Suspect]
     Active Substance: RIVAROXABAN
     Indication: Atrial fibrillation
     Dosage: 10 MG, QD
     Route: 048

REACTIONS (6)
  - Fall [Unknown]
  - Craniocerebral injury [Unknown]
  - Subarachnoid haemorrhage [Recovered/Resolved with Sequelae]
  - Hip fracture [Unknown]
  - Electrolyte imbalance [Unknown]
  - Renal impairment [Unknown]

NARRATIVE: CASE EVENT DATE: 20211203
